FAERS Safety Report 20546941 (Version 2)
Quarter: 2022Q2

REPORT INFORMATION
  Report Type: Spontaneous
  Country: MX (occurrence: MX)
  Receive Date: 20220303
  Receipt Date: 20220405
  Transmission Date: 20220721
  Serious: Yes (Death, Congenital Anomaly, Other)
  Sender: FDA-Public Use
  Company Number: MX-LUPIN PHARMACEUTICALS INC.-2022-02848

PATIENT
  Sex: Male
  Weight: 2.63 kg

DRUGS (3)
  1. BETAMETHASONE [Suspect]
     Active Substance: BETAMETHASONE
     Indication: Maternal therapy to enhance foetal lung maturity
     Dosage: 12 MG
     Route: 064
  2. NPH INSULIN [Suspect]
     Active Substance: INSULIN BEEF
     Indication: Gestational diabetes
     Dosage: 20 INTERNATIONAL UNIT, BID
     Route: 064
  3. DEXTROSE [Suspect]
     Active Substance: DEXTROSE
     Indication: Glucose tolerance test
     Dosage: 75 GRAM
     Route: 064

REACTIONS (8)
  - Death [Fatal]
  - Double outlet right ventricle [Unknown]
  - Foetal distress syndrome [Unknown]
  - Cardiogenic shock [Unknown]
  - Hypotension [Unknown]
  - Shock [Unknown]
  - Premature baby [Unknown]
  - Foetal exposure during pregnancy [Unknown]
